FAERS Safety Report 6087432-3 (Version None)
Quarter: 2009Q1

REPORT INFORMATION
  Report Type: 
  Country: None (occurrence: None)
  Receive Date: 20090223
  Receipt Date: 20090218
  Transmission Date: 20090719
  Serious: Yes (Hospitalization)
  Sender: FDA-Public Use
  Company Number: US-MERCK-0902USA03092

PATIENT
  Age: 66 Year
  Sex: Female

DRUGS (1)
  1. JANUMET [Suspect]
     Indication: TYPE 2 DIABETES MELLITUS
     Route: 048
     Dates: start: 20090101

REACTIONS (4)
  - BRAIN OEDEMA [None]
  - CEREBRAL HAEMORRHAGE [None]
  - GRAND MAL CONVULSION [None]
  - SKIN LACERATION [None]
